FAERS Safety Report 19201983 (Version 5)
Quarter: 2022Q1

REPORT INFORMATION
  Report Type: Report from Study
  Country: US (occurrence: US)
  Receive Date: 20210430
  Receipt Date: 20220225
  Transmission Date: 20220423
  Serious: Yes (Hospitalization, Other)
  Sender: FDA-Public Use
  Company Number: US-TAKEDA-2021TUS026656

PATIENT
  Sex: Male
  Weight: 84 kg

DRUGS (1)
  1. PONATINIB [Suspect]
     Active Substance: PONATINIB
     Indication: Acute lymphocytic leukaemia (in remission)
     Dosage: 15 MILLIGRAM, QD
     Route: 048

REACTIONS (6)
  - COVID-19 [Unknown]
  - Gallbladder disorder [Unknown]
  - Confusional state [Unknown]
  - Pain [Unknown]
  - Infection [Unknown]
  - Product dose omission issue [Unknown]
